FAERS Safety Report 24620793 (Version 1)
Quarter: 2024Q4

REPORT INFORMATION
  Report Type: Other
  Country: CN (occurrence: CN)
  Receive Date: 20241114
  Receipt Date: 20241114
  Transmission Date: 20250115
  Serious: Yes (Hospitalization, Disabling, Other)
  Sender: INCYTE
  Company Number: CN-002147023-NVSC2024CN218919

PATIENT

DRUGS (1)
  1. RUXOLITINIB [Suspect]
     Active Substance: RUXOLITINIB
     Indication: Primary myelofibrosis
     Dosage: 10 MG, BID
     Route: 048
     Dates: start: 20241025, end: 20241111

REACTIONS (1)
  - Interstitial lung disease [Recovering/Resolving]

NARRATIVE: CASE EVENT DATE: 20241104
